FAERS Safety Report 20439434 (Version 2)
Quarter: 2022Q1

REPORT INFORMATION
  Report Type: Report from Study
  Country: DE (occurrence: DE)
  Receive Date: 20220207
  Receipt Date: 20220211
  Transmission Date: 20220423
  Serious: Yes (Hospitalization, Other)
  Sender: FDA-Public Use
  Company Number: DE-BRISTOL-MYERS SQUIBB COMPANY-BMS-2022-014901

PATIENT
  Age: 53 Year
  Sex: Male
  Weight: 82 kg

DRUGS (5)
  1. NIVOLUMAB [Suspect]
     Active Substance: NIVOLUMAB
     Indication: Gastric cancer
     Dosage: 240 MILLIGRAM
     Route: 065
     Dates: start: 20220114, end: 20220114
  2. OXALIPLATIN [Suspect]
     Active Substance: OXALIPLATIN
     Indication: Gastric cancer
     Dosage: 170 MILLIGRAM
     Route: 065
     Dates: end: 20220114
  3. FLUOROURACIL [Suspect]
     Active Substance: FLUOROURACIL
     Indication: Gastric cancer
     Dosage: 5200 MILLIGRAM
     Route: 065
     Dates: end: 20220114
  4. LEUCOVORIN CALCIUM [Suspect]
     Active Substance: LEUCOVORIN CALCIUM
     Indication: Gastric cancer
     Dosage: 400 MILLIGRAM
     Route: 065
     Dates: end: 20220114
  5. DOCETAXEL [Suspect]
     Active Substance: DOCETAXEL
     Indication: Gastric cancer
     Dosage: 100 MILLIGRAM
     Route: 065
     Dates: end: 20220114

REACTIONS (1)
  - Metastases to bone marrow [Recovered/Resolved]

NARRATIVE: CASE EVENT DATE: 20220127
